FAERS Safety Report 9538481 (Version 2)
Quarter: 2013Q3

REPORT INFORMATION
  Report Type: Spontaneous
  Country: DK (occurrence: DK)
  Receive Date: 20130920
  Receipt Date: 20130930
  Transmission Date: 20140515
  Serious: Yes (Hospitalization)
  Sender: FDA-Public Use
  Company Number: DK-JNJFOC-20130906343

PATIENT
  Age: 40 Year
  Sex: Male

DRUGS (1)
  1. REMICADE [Suspect]
     Indication: SACROILIITIS
     Route: 042
     Dates: start: 20111218, end: 20120601

REACTIONS (9)
  - Pneumonia [Recovered/Resolved]
  - Myalgia [Unknown]
  - Dyspnoea [Unknown]
  - Sarcoidosis [Unknown]
  - Fatigue [Unknown]
  - Productive cough [Unknown]
  - Weight decreased [Unknown]
  - Arthralgia [Unknown]
  - Off label use [Unknown]
